FAERS Safety Report 10406444 (Version 1)
Quarter: 2014Q3

REPORT INFORMATION
  Report Type: Spontaneous
  Country: US (occurrence: None)
  Receive Date: 20140822
  Receipt Date: 20140822
  Transmission Date: 20150326
  Serious: No
  Sender: FDA-Public Use
  Company Number: None

PATIENT
  Age: 70 Year
  Sex: Male
  Weight: 84 kg

DRUGS (6)
  1. NORCO [Concomitant]
     Active Substance: ACETAMINOPHEN\HYDROCODONE BITARTRATE
  2. GRANISETRON [Concomitant]
     Active Substance: GRANISETRON
  3. AMBIEN [Concomitant]
     Active Substance: ZOLPIDEM TARTRATE
  4. LASIX [Concomitant]
     Active Substance: FUROSEMIDE
  5. IFOSFAMIDE. [Suspect]
     Active Substance: IFOSFAMIDE
     Indication: LYMPHOMA
     Route: 042
     Dates: start: 20140629
  6. MORPHINE [Concomitant]
     Active Substance: MORPHINE

REACTIONS (6)
  - Delirium [None]
  - Tremor [None]
  - Somnolence [None]
  - Mental disorder [None]
  - Confusional state [None]
  - Restlessness [None]

NARRATIVE: CASE EVENT DATE: 20140629
